FAERS Safety Report 15130925 (Version 1)
Quarter: 2018Q3

REPORT INFORMATION
  Report Type: Spontaneous
  Country: IE (occurrence: IE)
  Receive Date: 20180711
  Receipt Date: 20180711
  Transmission Date: 20181010
  Serious: Yes (Other)
  Sender: FDA-Public Use
  Company Number: IE-GILEAD-2018-0339387

PATIENT
  Age: 28 Year
  Sex: Male

DRUGS (9)
  1. MELATONIN [Concomitant]
     Active Substance: MELATONIN
     Indication: SLEEP DISORDER
  2. GENVOYA [Suspect]
     Active Substance: COBICISTAT\ELVITEGRAVIR\EMTRICITABINE\TENOFOVIR ALAFENAMIDE FUMARATE
     Indication: HIV INFECTION
     Dosage: UNK UNK, QD
     Route: 048
     Dates: start: 20180321, end: 20180510
  3. PHOSPHATIDIC ACID [Concomitant]
  4. MELATONIN (G) [Concomitant]
     Indication: SLEEP DISORDER
     Dosage: PRN
  5. HYDROXYMETHYLBUTYRATE [Concomitant]
     Indication: NUTRITIONAL SUPPLEMENTATION
  6. LAXOSTERONE [Concomitant]
     Indication: NUTRITIONAL SUPPLEMENTATION
  7. FOLIDRONE [Concomitant]
  8. TURKESTERONE [Concomitant]
     Indication: NUTRITIONAL SUPPLEMENTATION
  9. URSOLIC ACID [Concomitant]
     Active Substance: DIETARY SUPPLEMENT

REACTIONS (1)
  - Blood potassium increased [Recovered/Resolved]

NARRATIVE: CASE EVENT DATE: 20180509
